FAERS Safety Report 5831733-8 (Version None)
Quarter: 2008Q3

REPORT INFORMATION
  Report Type: 
  Country: None (occurrence: None)
  Receive Date: 20080803
  Receipt Date: 20080723
  Transmission Date: 20090109
  Serious: Yes (Hospitalization)
  Sender: FDA-Public Use
  Company Number: PHEH1999US03613

PATIENT
  Sex: Male

DRUGS (14)
  1. RAD 666 RAD+ [Suspect]
     Dosage: 2 MG, BID
     Route: 048
     Dates: start: 19981211, end: 19981218
  2. NEORAL [Suspect]
     Route: 048
     Dates: start: 19981206, end: 19981218
  3. PREDNISONE [Concomitant]
  4. BACTRIM [Concomitant]
  5. MORPHINE [Concomitant]
  6. NYSTATIN [Concomitant]
  7. PEPCID [Concomitant]
  8. ACYCLOVIR [Concomitant]
  9. INSULIN [Concomitant]
  10. ACTIGALL [Concomitant]
  11. PACKED RED BLOOD CELLS (BLOOD CELLS, PACKED HUMAN) [Concomitant]
  12. METOPROLOL [Concomitant]
  13. ISORDIL [Concomitant]
  14. LABETALOL HCL [Concomitant]

REACTIONS (2)
  - CONFUSIONAL STATE [None]
  - NEUROTOXICITY [None]
